FAERS Safety Report 10389621 (Version 1)
Quarter: 2014Q3

REPORT INFORMATION
  Report Type: Spontaneous
  Country: US (occurrence: None)
  Receive Date: 20140813
  Receipt Date: 20140813
  Transmission Date: 20150326
  Serious: Yes (Other)
  Sender: FDA-Public Use
  Company Number: AUR-APL-2014-07919

PATIENT
  Age: 62 Year
  Sex: Female

DRUGS (7)
  1. TOBRAMYCIN [Suspect]
     Active Substance: TOBRAMYCIN
     Indication: DEVICE RELATED SEPSIS
  2. SIMVASTATIN (SIMVASTATIN) [Concomitant]
     Active Substance: SIMVASTATIN
  3. CLOPIDOGEL (CLOPIDOGREL) [Concomitant]
  4. LISINOPRIL (LISINOPRIL) [Concomitant]
     Active Substance: LISINOPRIL
  5. METOPROLOL (METOPROLOL) [Concomitant]
     Active Substance: METOPROLOL
  6. ASPIRIN (ACETYLSALICYLIC ACID) [Concomitant]
     Active Substance: ASPIRIN
  7. SULFAMETHOXAZOLE AND TRIMETHOPRIM [Suspect]
     Active Substance: SULFAMETHOXAZOLE\TRIMETHOPRIM
     Indication: URINARY TRACT INFECTION

REACTIONS (9)
  - Cellulitis [None]
  - Renal failure acute [None]
  - Acinetobacter infection [None]
  - Cardiac failure congestive [None]
  - Tachycardia [None]
  - Acute respiratory distress syndrome [None]
  - Pseudomonas infection [None]
  - Toxic epidermal necrolysis [None]
  - Device related sepsis [None]
